FAERS Safety Report 12776585 (Version 2)
Quarter: 2016Q4

REPORT INFORMATION
  Report Type: Spontaneous
  Country: FR (occurrence: FR)
  Receive Date: 20160923
  Receipt Date: 20161024
  Transmission Date: 20170207
  Serious: Yes (Other)
  Sender: FDA-Public Use
  Company Number: FR-MYLANLABS-2016M1040797

PATIENT

DRUGS (4)
  1. PREVISCAN                          /00789001/ [Concomitant]
     Active Substance: FLUINDIONE
     Indication: PHLEBITIS
     Dosage: UNK
  2. PULMICORT TURBUHALER [Concomitant]
     Active Substance: BUDESONIDE
     Indication: ASTHMA
     Dosage: UNK
     Route: 048
  3. CALPEROS                           /07357001/ [Concomitant]
     Indication: OSTEOPOROSIS
     Dosage: UNK
     Route: 048
  4. FORMOTEROL MYLAN 12 MICROGRAMMES, POUDRE POUR INHALATIONENG?LULE [Suspect]
     Active Substance: FORMOTEROL
     Indication: ASTHMA
     Dosage: UNK UNK, BID
     Route: 055
     Dates: start: 20160926, end: 20161003

REACTIONS (7)
  - Drug ineffective [Unknown]
  - Dyspnoea [Recovered/Resolved]
  - Swollen tongue [Recovered/Resolved]
  - Asphyxia [Recovered/Resolved]
  - Angioedema [Recovered/Resolved]
  - Aphthous ulcer [Recovered/Resolved]
  - Product substitution issue [None]

NARRATIVE: CASE EVENT DATE: 2016
